FAERS Safety Report 5382869-X (Version None)
Quarter: 2007Q3

REPORT INFORMATION
  Report Type: 
  Country: None (occurrence: None)
  Receive Date: 20070703
  Receipt Date: 20070703
  Transmission Date: 20080115
  Serious: No
  Sender: FDA-Public Use
  Company Number: None

PATIENT
  Sex: Female

DRUGS (1)
  1. COPAXONE [Suspect]
     Indication: MULTIPLE SCLEROSIS
     Dosage: COPAXONE 20MG DAILY SQ
     Route: 058
     Dates: start: 20050322, end: 20070702

REACTIONS (2)
  - DYSPNOEA [None]
  - INJECTION SITE ERYTHEMA [None]
